FAERS Safety Report 9619919 (Version 1)
Quarter: 2013Q4

REPORT INFORMATION
  Report Type: Spontaneous
  Country: US (occurrence: US)
  Receive Date: 20131014
  Receipt Date: 20131014
  Transmission Date: 20140711
  Serious: No
  Sender: FDA-Public Use
  Company Number: US-PFIZER INC-2013289193

PATIENT
  Age: 59 Year
  Sex: Female
  Weight: 77.1 kg

DRUGS (3)
  1. PREMPRO [Suspect]
     Indication: MENOPAUSAL SYMPTOMS
     Dosage: 0.625/2.5MG DAILY
     Dates: start: 201307
  2. HYDROCHLOROTHIAZIDE [Suspect]
     Indication: HYPERTENSION
     Dosage: 25 MG, 1X/DAY
  3. AMLODIPINE/LISINOPRIL [Concomitant]
     Indication: HYPERTENSION
     Dosage: (AMLODIPINE 5MG / LISINOPRIL 20 MG), 1X/DAY

REACTIONS (2)
  - Drug dispensing error [Unknown]
  - Blood potassium decreased [Unknown]
